FAERS Safety Report 9949267 (Version 2)
Quarter: 2014Q1

REPORT INFORMATION
  Report Type: Spontaneous
  Country: FR (occurrence: FR)
  Receive Date: 20140304
  Receipt Date: 20140328
  Transmission Date: 20141002
  Serious: Yes (Hospitalization, Other)
  Sender: FDA-Public Use
  Company Number: FR-UCBSA-113445

PATIENT
  Age: 63 Year
  Sex: Male

DRUGS (2)
  1. CIMZIA [Suspect]
     Indication: RHEUMATOID ARTHRITIS
     Dates: start: 201301
  2. METHOTREXATE [Concomitant]
     Indication: RHEUMATOID ARTHRITIS

REACTIONS (4)
  - Pulmonary tuberculosis [Recovered/Resolved]
  - Atrial fibrillation [Recovered/Resolved]
  - Septic shock [Recovered/Resolved]
  - Pyrexia [Recovered/Resolved]
